FAERS Safety Report 9547117 (Version 2)
Quarter: 2013Q4

REPORT INFORMATION
  Report Type: Report from Study
  Country: AU (occurrence: AU)
  Receive Date: 20130924
  Receipt Date: 20131125
  Transmission Date: 20140711
  Serious: Yes (Other)
  Sender: FDA-Public Use
  Company Number: PHHY2013AU105816

PATIENT
  Sex: Female

DRUGS (5)
  1. ACLASTA [Suspect]
     Dosage: UNK UKN, UNK
     Route: 042
     Dates: start: 201208
  2. ENDEP [Concomitant]
     Indication: FIBROMYALGIA
     Dosage: 25 MG, UNK
     Route: 048
     Dates: start: 2013
  3. CYMBALTA [Concomitant]
     Indication: FIBROMYALGIA
     Dosage: 30 MG, UNK
     Route: 048
     Dates: start: 20130814
  4. CRESTOR [Concomitant]
     Indication: HYPERLIPIDAEMIA
     Dosage: UNK UKN, UNK
     Route: 048
  5. NAPROXEN [Concomitant]
     Indication: OSTEOARTHRITIS
     Dosage: AS REQUIRED
     Route: 048

REACTIONS (4)
  - Syncope [Unknown]
  - Dizziness [Unknown]
  - Vomiting [Unknown]
  - Insomnia [Unknown]
